FAERS Safety Report 5569742-9 (Version None)
Quarter: 2007Q4

REPORT INFORMATION
  Report Type: 
  Country: None (occurrence: None)
  Receive Date: 20071217
  Receipt Date: 20071204
  Transmission Date: 20080405
  Serious: Yes (Other)
  Sender: FDA-Public Use
  Company Number: B0499426A

PATIENT
  Age: 28 Year
  Sex: Male

DRUGS (15)
  1. MERCAPTOPURINE TABLET (GENERIC) (MERCAPTOPURINE) [Suspect]
     Indication: B PRECURSOR TYPE ACUTE LEUKAEMIA
     Dosage: ORAL
     Route: 048
  2. METHOTREXATE [Suspect]
     Indication: B PRECURSOR TYPE ACUTE LEUKAEMIA
     Dosage: ORAL / INTRAVENOUS
     Route: 042
  3. VINCRISTINE [Suspect]
     Indication: B PRECURSOR TYPE ACUTE LEUKAEMIA
  4. CYTARABINE [Suspect]
     Indication: B PRECURSOR TYPE ACUTE LEUKAEMIA
  5. CYCLOPHOSPHAMIDE [Suspect]
     Indication: B PRECURSOR TYPE ACUTE LEUKAEMIA
     Dosage: 1 G/M2
  6. COLASPASE (FORMULATION UNKNOWN) (ASPARAGINASE) [Suspect]
     Indication: B PRECURSOR TYPE ACUTE LEUKAEMIA
  7. RADIOTHERAPY (FORMULATION UNKNOWN) (RADIOTHERAPY) [Suspect]
     Indication: B PRECURSOR TYPE ACUTE LEUKAEMIA
  8. THIOGUANINE [Suspect]
     Indication: B PRECURSOR TYPE ACUTE LEUKAEMIA
  9. PREDNISOLONE [Suspect]
  10. DAUNORUBICIN (FORMULATION UNKNOWN) (DAUNORUBICIN) [Suspect]
  11. BUSULPHAN (FORMULATION UNKNOWN) (GENERIC) (BUSULFAN) [Suspect]
  12. ANTHRACYCLINES (FORMULATION UNKNOWN) (ANTHRACYCLINES) [Suspect]
  13. RADIOTHERAPY (FORMULATION UNKNOWN) (RADIOTHERAPY) [Suspect]
  14. DEXAMETHASONE [Suspect]
  15. CYCLOSPORINE [Suspect]

REACTIONS (14)
  - ACUTE LYMPHOCYTIC LEUKAEMIA RECURRENT [None]
  - ANGER [None]
  - ANXIETY [None]
  - CENTRAL NERVOUS SYSTEM LEUKAEMIA [None]
  - DEAFNESS NEUROSENSORY [None]
  - DEPRESSIVE SYMPTOM [None]
  - DILATATION VENTRICULAR [None]
  - DISTURBANCE IN SOCIAL BEHAVIOUR [None]
  - MENINGOCOCCAL SEPSIS [None]
  - MENTAL DISORDER [None]
  - NIGHTMARE [None]
  - ORGAN TRANSPLANT [None]
  - OSTEONECROSIS [None]
  - STRESS [None]
